FAERS Safety Report 10400076 (Version 3)
Quarter: 2015Q1

REPORT INFORMATION
  Report Type: Spontaneous
  Country: US (occurrence: US)
  Receive Date: 20140821
  Receipt Date: 20150107
  Transmission Date: 20150720
  Serious: Yes (Other)
  Sender: FDA-Public Use
  Company Number: US-BAYER-2014-125269

PATIENT
  Age: 32 Year
  Sex: Female
  Weight: 81.63 kg

DRUGS (1)
  1. MIRENA [Suspect]
     Active Substance: LEVONORGESTREL
     Indication: CONTRACEPTION
     Dosage: 20 MCG/24HR, CONT
     Route: 015
     Dates: start: 20120731, end: 20120905

REACTIONS (15)
  - Injury [None]
  - Medical device discomfort [None]
  - Genital haemorrhage [None]
  - Depressed mood [Not Recovered/Not Resolved]
  - Uterine perforation [None]
  - Abdominal pain [None]
  - Injury associated with device [None]
  - Device dislocation [None]
  - Mental disorder [Not Recovered/Not Resolved]
  - Pelvic pain [None]
  - Depression [Not Recovered/Not Resolved]
  - Anxiety [Not Recovered/Not Resolved]
  - Fear [Not Recovered/Not Resolved]
  - Infertility female [None]
  - Stress [Not Recovered/Not Resolved]

NARRATIVE: CASE EVENT DATE: 20120810
